FAERS Safety Report 18346019 (Version 2)
Quarter: 2020Q4

REPORT INFORMATION
  Report Type: Spontaneous
  Country: AU (occurrence: AU)
  Receive Date: 20201005
  Receipt Date: 20201130
  Transmission Date: 20210114
  Serious: Yes (Other)
  Sender: FDA-Public Use
  Company Number: AU-CELGENEUS-AUS-20200907733

PATIENT
  Age: 67 Year
  Sex: Male

DRUGS (1)
  1. ENASIDENIB [Suspect]
     Active Substance: ENASIDENIB
     Indication: ACUTE MYELOID LEUKAEMIA RECURRENT
     Dosage: 100 MILLIGRAM
     Route: 048
     Dates: start: 20190517, end: 20200921

REACTIONS (5)
  - Lung consolidation [Unknown]
  - Acute myeloid leukaemia recurrent [Unknown]
  - Bronchiectasis [Unknown]
  - Tuberculosis [Unknown]
  - Haemoptysis [Unknown]

NARRATIVE: CASE EVENT DATE: 202009
